FAERS Safety Report 6970665-9 (Version None)
Quarter: 2010Q3

REPORT INFORMATION
  Report Type: 
  Country: None (occurrence: None)
  Receive Date: 20100908
  Receipt Date: 20100827
  Transmission Date: 20110219
  Serious: Yes (Other)
  Sender: FDA-Public Use
  Company Number: US-PFIZER INC-2010044573

PATIENT
  Sex: Female

DRUGS (4)
  1. CHANTIX [Suspect]
     Indication: SMOKING CESSATION THERAPY
     Dosage: UNK
     Dates: start: 20081013, end: 20081201
  2. FLEXERIL [Concomitant]
     Indication: MUSCLE RELAXANT THERAPY
     Dosage: UNK
     Dates: start: 20040101
  3. ALBUTEROL [Concomitant]
     Indication: CHRONIC OBSTRUCTIVE PULMONARY DISEASE
     Dosage: UNK
     Dates: start: 20040101
  4. ANAPROX [Concomitant]
     Indication: MIGRAINE
     Dosage: UNK
     Dates: start: 19950101, end: 20100101

REACTIONS (5)
  - BALANCE DISORDER [None]
  - DISORIENTATION [None]
  - LOSS OF CONSCIOUSNESS [None]
  - VERTIGO [None]
  - VISION BLURRED [None]
